FAERS Safety Report 10215358 (Version 2)
Quarter: 2014Q2

REPORT INFORMATION
  Report Type: Spontaneous
  Country: US (occurrence: US)
  Receive Date: 20140604
  Receipt Date: 20140610
  Transmission Date: 20141212
  Serious: Yes (Other)
  Sender: FDA-Public Use
  Company Number: US-DRREDDYS-USA/USA/14/0040770

PATIENT
  Age: 19 Year
  Sex: Female

DRUGS (1)
  1. ZENATANE [Suspect]
     Indication: ACNE
     Route: 065
     Dates: start: 20140501, end: 20140528

REACTIONS (1)
  - Mood altered [Recovered/Resolved]
